FAERS Safety Report 5797728-8 (Version None)
Quarter: 2008Q3

REPORT INFORMATION
  Report Type: 
  Country: None (occurrence: None)
  Receive Date: 20080702
  Receipt Date: 20080619
  Transmission Date: 20090109
  Serious: Yes (Death, Other)
  Sender: FDA-Public Use
  Company Number: DE-BAYER-200821022GPV

PATIENT

DRUGS (3)
  1. FLUDARABINE PHOSPHATE [Suspect]
     Indication: ACUTE MYELOID LEUKAEMIA
     Route: 065
  2. CYCLOSPORINE [Concomitant]
     Indication: IMMUNOSUPPRESSION
     Route: 065
  3. MOFETIL [Concomitant]
     Indication: IMMUNOSUPPRESSION
     Route: 065

REACTIONS (13)
  - ACUTE GRAFT VERSUS HOST DISEASE [None]
  - CAPILLARY LEAK SYNDROME [None]
  - CARDIOTOXICITY [None]
  - CHRONIC GRAFT VERSUS HOST DISEASE [None]
  - DEATH [None]
  - HAEMORRHAGE [None]
  - HEPATOTOXICITY [None]
  - MULTI-ORGAN FAILURE [None]
  - NEPHROPATHY TOXIC [None]
  - PNEUMONIA [None]
  - PROSTATE CANCER [None]
  - SEPTIC SHOCK [None]
  - STOMATITIS [None]
